FAERS Safety Report 19665490 (Version 2)
Quarter: 2021Q3

REPORT INFORMATION
  Report Type: Spontaneous
  Country: US (occurrence: US)
  Receive Date: 20210805
  Receipt Date: 20210905
  Transmission Date: 20211014
  Serious: No
  Sender: FDA-Public Use
  Company Number: US-JNJFOC-20210803436

PATIENT
  Age: 22 Year
  Sex: Male

DRUGS (2)
  1. CABOTEGRAVIR [Suspect]
     Active Substance: CABOTEGRAVIR
     Indication: PRODUCT USED FOR UNKNOWN INDICATION
     Dosage: UNK UNK, CYC 1 DOSE IM EVERY 28 DAYS 400/600MG
     Route: 030
  2. RILPIVIRINE [Suspect]
     Active Substance: RILPIVIRINE
     Indication: PRODUCT USED FOR UNKNOWN INDICATION
     Dosage: UNK UNK, CYC 1 DOSE IM EVERY 28 DAYS 400/600MG
     Route: 030

REACTIONS (3)
  - Underdose [Unknown]
  - Injection site pain [Unknown]
  - Product complaint [Unknown]

NARRATIVE: CASE EVENT DATE: 20210720
